FAERS Safety Report 4383345-3 (Version None)
Quarter: 2004Q2

REPORT INFORMATION
  Report Type: 
  Country: None (occurrence: None)
  Receive Date: 20040622
  Receipt Date: 20040622
  Transmission Date: 20050107
  Serious: Yes (Hospitalization)
  Sender: FDA-Public Use
  Company Number: None

PATIENT
  Age: 24 Year
  Sex: Male
  Weight: 55 kg

DRUGS (11)
  1. OXALIPLATIN 5 MG/ML MFR: SANOFI-SYNTHULABO [Suspect]
     Indication: TESTIS CANCER
     Dosage: 130 MG/M2 ( 220 MG) IV OVER 2 HOURS DAY 1
     Route: 042
     Dates: start: 20040608
  2. OXALIPLATIN 5 MG/ML MFR: SANOFI-SYNTHULABO [Suspect]
  3. BENADRYL [Concomitant]
  4. ZOFRAN [Concomitant]
  5. DECADRON [Concomitant]
  6. GEMCITABINE [Concomitant]
  7. ... [Concomitant]
  8. KCL TAB [Concomitant]
  9. ATIVAN [Concomitant]
  10. LORAZEPAM [Concomitant]
  11. MARINOL [Concomitant]

REACTIONS (7)
  - ANXIETY [None]
  - DYSPHONIA [None]
  - DYSPNOEA [None]
  - LARYNGOSPASM [None]
  - OXYGEN SATURATION DECREASED [None]
  - STRIDOR [None]
  - VOCAL CORD DISORDER [None]
